FAERS Safety Report 19405786 (Version 1)
Quarter: 2021Q2

REPORT INFORMATION
  Report Type: Spontaneous
  Country: DE (occurrence: DE)
  Receive Date: 20210611
  Receipt Date: 20210611
  Transmission Date: 20210717
  Serious: Yes (Hospitalization)
  Sender: FDA-Public Use
  Company Number: DE-TEVA-2021-DE-1919782

PATIENT
  Age: 83 Year
  Sex: Male
  Weight: 94 kg

DRUGS (14)
  1. CANDESARTAN AL 16MG [Concomitant]
     Dosage: 32 MILLIGRAM DAILY; 1?0?1?0
     Route: 048
  2. BISOPROLOL [Concomitant]
     Active Substance: BISOPROLOL
     Dosage: 2.5 MILLIGRAM DAILY;  1?0?0?0,
     Route: 048
  3. LANTUS 1000E. 100E./ML [Concomitant]
     Dosage: 8 IU (INTERNATIONAL UNIT) DAILY;   0?0?1?0
     Route: 058
  4. XARELTO [Suspect]
     Active Substance: RIVAROXABAN
     Dosage: 15 MILLIGRAM DAILY;   1?0?0?0
     Route: 048
  5. SIMVASTATIN. [Concomitant]
     Active Substance: SIMVASTATIN
     Dosage: 20 MILLIGRAM DAILY;   0?0?1?0,
     Route: 048
  6. CLOPIDOGREL [Suspect]
     Active Substance: CLOPIDOGREL BISULFATE
     Dosage: 75 MILLIGRAM DAILY;  1?0?0?0
     Route: 048
  7. FOSTER 100/6MIKROGRAMM [Concomitant]
     Dosage: 2 DOSAGE FORMS DAILY; ?1?0?1?0,
     Route: 055
  8. DOXAZOSIN [Concomitant]
     Active Substance: DOXAZOSIN MESYLATE
     Dosage: 8 MILLIGRAM DAILY;   1?0?1?0,
     Route: 048
  9. ISDN AL 40 RETARD [Concomitant]
     Dosage: 40 MILLIGRAM DAILY;  1?0?0?0,
  10. SPIRIVA RESPIMAT 1,25MIKROGRAMM [Concomitant]
     Dosage: 2 DOSAGE FORMS DAILY; ?2?0?0?0, METERED DOSE INHALER
     Route: 055
  11. OMEPRAZOL [Concomitant]
     Active Substance: OMEPRAZOLE
     Dosage: 20 MILLIGRAM DAILY;  1?0?0?0,
     Route: 048
  12. ACTRAPID HM PENFILL 300I.E. 100I.E./ML [Concomitant]
     Dosage: ACCORDING TO THE SCHEME,
     Route: 058
  13. TORASEMID [Concomitant]
     Active Substance: TORSEMIDE
     Dosage: 20 MG, 1?0.5?0?0
     Route: 048
  14. BERODUAL [Concomitant]
     Active Substance: FENOTEROL HYDROBROMIDE\IPRATROPIUM BROMIDE
     Dosage: IF NECESSARY, METERED DOSE INHALER
     Route: 055

REACTIONS (5)
  - Somnolence [Recovering/Resolving]
  - Weight decreased [Recovering/Resolving]
  - Cough [Recovering/Resolving]
  - Fatigue [Recovering/Resolving]
  - Dyspnoea [Recovering/Resolving]
